FAERS Safety Report 8406960 (Version 5)
Quarter: 2014Q1

REPORT INFORMATION
  Report Type: Spontaneous
  Country: US (occurrence: US)
  Receive Date: 20120215
  Receipt Date: 20140108
  Transmission Date: 20141002
  Serious: Yes (Hospitalization)
  Sender: FDA-Public Use
  Company Number: US-GLAXOSMITHKLINE-A0913461A

PATIENT
  Age: 70 Year
  Sex: Male
  Weight: 104.1 kg

DRUGS (6)
  1. AVANDIA [Suspect]
     Indication: DIABETES MELLITUS
     Dosage: 4MG PER DAY
     Route: 048
     Dates: start: 200107, end: 200406
  2. PRINIVIL [Concomitant]
  3. ZOCOR [Concomitant]
  4. HCTZ [Concomitant]
  5. METOPROLOL [Concomitant]
  6. PIOGLITAZONE [Concomitant]

REACTIONS (8)
  - Myocardial infarction [Unknown]
  - Supraventricular tachycardia [Unknown]
  - Atrial fibrillation [Unknown]
  - Cardiac failure congestive [Unknown]
  - Subarachnoid haemorrhage [Unknown]
  - Pleural effusion [Unknown]
  - Cardiovascular disorder [Unknown]
  - Cardiac disorder [Unknown]
